FAERS Safety Report 9407784 (Version 1)
Quarter: 2013Q1

REPORT INFORMATION
  Report Type: Spontaneous
  Country: AU (occurrence: None)
  Receive Date: 20130328
  Receipt Date: 20130328
  Transmission Date: 20140127
  Serious: Yes (Hospitalization)
  Sender: FDA-Public Use
  Company Number: 2012-AU-000056

PATIENT
  Age: 51 Year
  Sex: 0

DRUGS (8)
  1. ERYTHROMYCIN [Suspect]
     Dates: start: 20120828
  2. ATACAND (CANESRTAN CILEXETIL) [Suspect]
  3. BRAND UNKNOWN (DESEVENLAFAXINE) [Suspect]
  4. BRAND UNKNOWN (LITHIUM CARBONATE) [Suspect]
  5. AVANZA (MIRTAZEPINE) [Suspect]
  6. EUTROXSIG (THYROXINE SODIUM) [Concomitant]
  7. RHINOCROT AQUEOUS NASAL SPRAY (BUDESONIDE) [Concomitant]
  8. SOLONE (PREDNISOLONE) [Concomitant]

REACTIONS (4)
  - Renal failure acute [None]
  - Hypokalaemia [None]
  - Toxicity to various agents [None]
  - Drug interaction [None]
